FAERS Safety Report 7367615-2 (Version None)
Quarter: 2011Q1

REPORT INFORMATION
  Report Type: 
  Country: None (occurrence: None)
  Receive Date: 20110322
  Receipt Date: 20110315
  Transmission Date: 20110831
  Serious: Yes (Death, Other)
  Sender: FDA-Public Use
  Company Number: GB-PFIZER INC-2011057594

PATIENT
  Age: 72 Year
  Sex: Male

DRUGS (6)
  1. LANSOPRAZOLE [Concomitant]
     Dosage: 30 MG, 1X/DAY
  2. ALLOPURINOL [Concomitant]
     Dosage: 100 MG, 1X/DAY
  3. CAMPATH [Suspect]
     Indication: CHRONIC LYMPHOCYTIC LEUKAEMIA
     Dosage: UNK
     Dates: start: 20081101
  4. COTRIM [Concomitant]
     Dosage: 480 MG, 1X/DAY
  5. ACYCLOVIR [Concomitant]
     Dosage: 400 MG, 3X/DAY
  6. METHYLPREDNISOLONE [Suspect]
     Indication: CHRONIC LYMPHOCYTIC LEUKAEMIA
     Dosage: UNK
     Dates: start: 20081101

REACTIONS (3)
  - CHRONIC LYMPHOCYTIC LEUKAEMIA RECURRENT [None]
  - RENAL IMPAIRMENT [None]
  - HUMAN POLYOMAVIRUS INFECTION [None]
